FAERS Safety Report 7212191-8 (Version None)
Quarter: 2010Q4

REPORT INFORMATION
  Report Type: 
  Country: None (occurrence: None)
  Receive Date: 20101227
  Receipt Date: 20101216
  Transmission Date: 20110411
  Serious: Yes (Hospitalization)
  Sender: FDA-Public Use
  Company Number: 2010SP003544

PATIENT
  Age: 77 Year
  Sex: Female
  Weight: 61.7 kg

DRUGS (15)
  1. BROVANA [Suspect]
     Indication: COUGH
     Dosage: 15 UG/2ML; 1X; INHALATION
     Route: 055
     Dates: start: 20101207, end: 20101207
  2. BROVANA [Suspect]
     Indication: SPUTUM DISCOLOURED
     Dosage: 15 UG/2ML; 1X; INHALATION
     Route: 055
     Dates: start: 20101207, end: 20101207
  3. BROVANA [Suspect]
     Indication: WHEEZING
     Dosage: 15 UG/2ML; 1X; INHALATION
     Route: 055
     Dates: start: 20101207, end: 20101207
  4. ALL OTHER THERAPEUTIC PRODUCTS [Suspect]
     Dosage: 1X;INHALATION
     Route: 055
     Dates: start: 20101207, end: 20101207
  5. MEDROL [Suspect]
     Dosage: 1X
     Dates: start: 20101207, end: 20101207
  6. BACTRIM [Suspect]
     Dosage: 1X
     Dates: start: 20101207, end: 20101207
  7. PROVENTIL /00139501/ [Concomitant]
  8. LANOXIN [Concomitant]
  9. COUMADIN [Concomitant]
  10. VERAPAMIL [Concomitant]
  11. SYNTHROID [Concomitant]
  12. VICODIN [Concomitant]
  13. AMBIEN [Concomitant]
  14. CALCIUM [Concomitant]
  15. ANTIBIOTICS [Concomitant]

REACTIONS (8)
  - BLOOD GLUCOSE INCREASED [None]
  - BLOOD PRESSURE FLUCTUATION [None]
  - HEART RATE INCREASED [None]
  - MEMORY IMPAIRMENT [None]
  - OXYGEN SATURATION DECREASED [None]
  - PNEUMONIA [None]
  - PYREXIA [None]
  - TREMOR [None]
